FAERS Safety Report 5218467-8 (Version None)
Quarter: 2007Q1

REPORT INFORMATION
  Report Type: 
  Country: None (occurrence: None)
  Receive Date: 20061201
  Receipt Date: 20060320
  Transmission Date: 20070707
  Serious: Yes (Death)
  Sender: FDA-Public Use
  Company Number: SUS1-2006-00317

PATIENT
  Age: 10 Year

DRUGS (1)
  1. ADDERALL XR 10 [Suspect]
     Dosage: 15 MG, DAILY

REACTIONS (1)
  - SUDDEN DEATH [None]
